FAERS Safety Report 5232265-0 (Version None)
Quarter: 2007Q1

REPORT INFORMATION
  Report Type: 
  Country: None (occurrence: None)
  Receive Date: 20070205
  Receipt Date: 20070126
  Transmission Date: 20070707
  Serious: Yes (Death, Life-Threatening, Hospitalization, Disabling)
  Sender: FDA-Public Use
  Company Number: 06H-167-0310841-00

PATIENT
  Age: 5 Month
  Sex: Female
  Weight: 7.8 kg

DRUGS (4)
  1. ATRACURIUM BESYLATE [Suspect]
     Indication: GENERAL ANAESTHESIA
     Dosage: INTRAVENOUS
     Route: 042
     Dates: start: 20060620, end: 20060620
  2. PROPOFOL INJECTABLE EMULSION 1% (10 MG/ML) (PROPOFOL 1% INJECTABLE  EM [Suspect]
     Indication: GENERAL ANAESTHESIA
     Dosage: INTRAVENOUS
     Route: 042
     Dates: start: 20060620, end: 20060620
  3. DESFLURANE (DESFLURANE) [Suspect]
     Indication: GENERAL ANAESTHESIA
     Dosage: INHALATION
     Route: 055
     Dates: start: 20060620, end: 20060620
  4. AUGMENTIN '125' [Concomitant]

REACTIONS (4)
  - METABOLIC DISORDER [None]
  - MUSCLE NECROSIS [None]
  - MYOPATHY [None]
  - RESPIRATORY ARREST [None]
